FAERS Safety Report 4732180-2 (Version None)
Quarter: 2005Q3

REPORT INFORMATION
  Report Type: 
  Country: None (occurrence: None)
  Receive Date: 20050721
  Receipt Date: 20050602
  Transmission Date: 20060218
  Serious: No
  Sender: FDA-Public Use
  Company Number: 2005SP001217

PATIENT
  Age: 80 Year
  Sex: Female

DRUGS (2)
  1. LUNESTA [Suspect]
     Indication: INSOMNIA
     Dosage: 3 MG;HS;ORAL, 1.5 MG;HS;ORAL
     Route: 048
     Dates: start: 20050501, end: 20050601
  2. LUNESTA [Suspect]
     Indication: INSOMNIA
     Dosage: 3 MG;HS;ORAL, 1.5 MG;HS;ORAL
     Route: 048
     Dates: start: 20050602

REACTIONS (1)
  - HEADACHE [None]
